FAERS Safety Report 12012305 (Version 1)
Quarter: 2016Q1

REPORT INFORMATION
  Report Type: Spontaneous
  Country: CA (occurrence: CA)
  Receive Date: 20160205
  Receipt Date: 20160205
  Transmission Date: 20160526
  Serious: Yes (Death)
  Sender: FDA-Public Use
  Company Number: CA-TEVA-632340ACC

PATIENT
  Age: 81 Year
  Sex: Female
  Weight: 52 kg

DRUGS (25)
  1. ENTERIC COATED ASA [Concomitant]
     Active Substance: ASPIRIN
  2. FELODIPINE. [Concomitant]
     Active Substance: FELODIPINE
  3. LACTULOSE. [Concomitant]
     Active Substance: LACTULOSE
  4. DICLOFENAC SODIUM. [Concomitant]
     Active Substance: DICLOFENAC SODIUM
  5. LEVOFLOXACIN. [Concomitant]
     Active Substance: LEVOFLOXACIN
  6. LEVOTHYROXINE. [Concomitant]
     Active Substance: LEVOTHYROXINE
  7. METOPROLOL. [Concomitant]
     Active Substance: METOPROLOL
  8. FOLATE [Concomitant]
     Active Substance: FOLATE SODIUM
  9. HYDROMORPHONE [Concomitant]
     Active Substance: HYDROMORPHONE
  10. LASIX [Concomitant]
     Active Substance: FUROSEMIDE
  11. FERROUS GLUCONATE [Concomitant]
     Active Substance: FERROUS GLUCONATE
  12. FRAGMIN [Concomitant]
     Active Substance: DALTEPARIN SODIUM
  13. LEVAQUIN [Concomitant]
     Active Substance: LEVOFLOXACIN
  14. TELMISARTAN. [Concomitant]
     Active Substance: TELMISARTAN
  15. COLACE [Concomitant]
     Active Substance: DOCUSATE SODIUM
  16. FELODIPINE. [Concomitant]
     Active Substance: FELODIPINE
  17. METHOTREXATE [Concomitant]
     Active Substance: METHOTREXATE
  18. PANTOLOC [Concomitant]
     Active Substance: PANTOPRAZOLE SODIUM
  19. METHOTREXATE [Suspect]
     Active Substance: METHOTREXATE
     Indication: RHEUMATOID ARTHRITIS
     Route: 048
  20. FELODIPINE. [Concomitant]
     Active Substance: FELODIPINE
  21. PREDNISONE. [Concomitant]
     Active Substance: PREDNISONE
  22. TELMISARTAN. [Concomitant]
     Active Substance: TELMISARTAN
  23. ARTHROTEC [Suspect]
     Active Substance: DICLOFENAC SODIUM\MISOPROSTOL
     Indication: PAIN MANAGEMENT
     Dosage: 150 MILLIGRAM DAILY;
     Route: 048
  24. SENNOSIDES. [Concomitant]
     Active Substance: SENNOSIDES
  25. TYLENOL [Concomitant]
     Active Substance: ACETAMINOPHEN

REACTIONS (9)
  - Hyponatraemia [Fatal]
  - Hypotension [Fatal]
  - Multiple organ dysfunction syndrome [Fatal]
  - Acute kidney injury [Fatal]
  - Jaw fracture [Fatal]
  - Pancytopenia [Fatal]
  - Toxicity to various agents [Fatal]
  - Fall [Fatal]
  - Hyperkalaemia [Fatal]
